FAERS Safety Report 10606321 (Version 1)
Quarter: 2014Q4

REPORT INFORMATION
  Report Type: Report from Study
  Country: US (occurrence: US)
  Receive Date: 20141125
  Receipt Date: 20141125
  Transmission Date: 20150529
  Serious: No
  Sender: FDA-Public Use
  Company Number: US-AMGEN-USASL2014091219

PATIENT
  Age: 57 Year
  Sex: Female

DRUGS (1)
  1. ENBREL [Suspect]
     Active Substance: ETANERCEPT
     Indication: PSORIASIS
     Dosage: 50 MG, 2 TIMES/WK
     Route: 058
     Dates: start: 20140920

REACTIONS (5)
  - Injection site reaction [Unknown]
  - Injection site swelling [Unknown]
  - Psoriasis [Unknown]
  - Injection site erythema [Unknown]
  - Injection site rash [Recovered/Resolved]

NARRATIVE: CASE EVENT DATE: 2014
